FAERS Safety Report 8049393-7 (Version None)
Quarter: 2012Q1

REPORT INFORMATION
  Report Type: 
  Country: None (occurrence: None)
  Receive Date: 20120117
  Receipt Date: 20120111
  Transmission Date: 20120608
  Serious: Yes (Death, Hospitalization)
  Sender: FDA-Public Use
  Company Number: JP-ROCHE-789307

PATIENT
  Sex: Male

DRUGS (9)
  1. LOXONIN [Suspect]
     Indication: PRODUCT USED FOR UNKNOWN INDICATION
     Route: 048
     Dates: start: 20110602
  2. LIPITOR [Concomitant]
     Route: 048
  3. AMARYL [Concomitant]
     Route: 048
  4. AMLODIPINE [Concomitant]
     Route: 048
  5. CISPLATIN [Concomitant]
     Indication: LUNG ADENOCARCINOMA
     Dosage: NOTE: DOSAGE IS UNCERTAIN.
     Route: 041
  6. JANUVIA [Concomitant]
     Route: 048
  7. MUCOSTA [Concomitant]
     Route: 048
  8. GEMCITABINE [Concomitant]
     Indication: LUNG ADENOCARCINOMA
     Dosage: NOTE: DOSAGE IS UNCERTAIN.
     Route: 041
  9. AVASTIN [Suspect]
     Indication: LUNG ADENOCARCINOMA
     Route: 042
     Dates: start: 20110607, end: 20110607

REACTIONS (3)
  - DISEASE PROGRESSION [None]
  - HAEMATEMESIS [None]
  - MELAENA [None]
